FAERS Safety Report 4645369-8 (Version None)
Quarter: 2005Q2

REPORT INFORMATION
  Report Type: 
  Country: None (occurrence: None)
  Receive Date: 20050425
  Receipt Date: 20050411
  Transmission Date: 20051028
  Serious: Yes (Hospitalization)
  Sender: FDA-Public Use
  Company Number: 2005058410

PATIENT
  Age: 53 Year
  Sex: Male

DRUGS (4)
  1. GABAPENTIN [Suspect]
     Indication: NEUROPATHIC PAIN
     Dosage: 900 MG (900 MG)
     Dates: start: 20010701, end: 20010101
  2. MORPHINE [Concomitant]
  3. LANSOPRAZOLE [Concomitant]
  4. PHENOXYMETHYLPENICILLIN (PHENOXYMETHYLPENICILLIN) [Concomitant]

REACTIONS (2)
  - NEUTROPENIC SEPSIS [None]
  - WHITE BLOOD CELL COUNT DECREASED [None]
